FAERS Safety Report 20612928 (Version 7)
Quarter: 2022Q4

REPORT INFORMATION
  Report Type: Report from Study
  Country: US (occurrence: US)
  Receive Date: 20220318
  Receipt Date: 20221010
  Transmission Date: 20230113
  Serious: Yes (Death, Life-Threatening, Hospitalization, Other)
  Sender: FDA-Public Use
  Company Number: US-GILEAD-2021-0541587

PATIENT
  Age: 80 Year
  Sex: Male
  Weight: 74.8 kg

DRUGS (4)
  1. REMDESIVIR [Suspect]
     Active Substance: REMDESIVIR
     Indication: COVID-19
     Dosage: 100 MG, QD
     Route: 042
     Dates: start: 20210618, end: 20210622
  2. NARSOPLIMAB [Suspect]
     Active Substance: NARSOPLIMAB
     Indication: COVID-19
     Dosage: 307.1 MG BIW
     Route: 042
     Dates: start: 20210618, end: 20210705
  3. HEPARIN [Concomitant]
     Active Substance: HEPARIN SODIUM
     Dosage: 1200 UNITS/H
     Dates: start: 20210704, end: 20210706
  4. DEXAMETHASONE [Concomitant]
     Active Substance: DEXAMETHASONE
     Dosage: UNK
     Dates: start: 2021, end: 2021

REACTIONS (5)
  - Respiratory failure [Fatal]
  - Transaminases increased [Not Recovered/Not Resolved]
  - Pneumothorax [Not Recovered/Not Resolved]
  - Thrombosis [Not Recovered/Not Resolved]
  - Blood creatinine increased [Not Recovered/Not Resolved]

NARRATIVE: CASE EVENT DATE: 20210701
